FAERS Safety Report 9573197 (Version 1)
Quarter: 2013Q4

REPORT INFORMATION
  Report Type: Spontaneous
  Country: US (occurrence: US)
  Receive Date: 20131001
  Receipt Date: 20131001
  Transmission Date: 20140711
  Serious: No
  Sender: FDA-Public Use
  Company Number: US-PURDUE-USA-2012-0082384

PATIENT
  Age: 51 Year
  Sex: Female

DRUGS (2)
  1. BUTRANS [Suspect]
     Indication: FIBROMYALGIA
     Dosage: 20 MCG, Q1H
     Route: 062
     Dates: start: 2011
  2. BUTRANS [Suspect]
     Indication: ANKYLOSING SPONDYLITIS

REACTIONS (5)
  - Application site burn [Unknown]
  - Application site pain [Unknown]
  - Application site pruritus [Unknown]
  - Pain [Unknown]
  - Wrong technique in drug usage process [Unknown]
